FAERS Safety Report 9439753 (Version 1)
Quarter: 2013Q3

REPORT INFORMATION
  Report Type: Spontaneous
  Country: US (occurrence: None)
  Receive Date: 20130802
  Receipt Date: 20130802
  Transmission Date: 20140515
  Serious: Yes (Other)
  Sender: FDA-Public Use
  Company Number: None

PATIENT
  Age: 64 None
  Sex: Female
  Weight: 69.4 kg

DRUGS (2)
  1. MACROBID [Suspect]
     Indication: URINARY TRACT INFECTION
     Dosage: I PILL TWICE DAILY BY MOUTH
     Route: 048
     Dates: start: 20130425, end: 20130429
  2. LEVOTHYROXINE [Concomitant]

REACTIONS (1)
  - Alopecia [None]
